FAERS Safety Report 7064791-6 (Version None)
Quarter: 2010Q4

REPORT INFORMATION
  Report Type: 
  Country: None (occurrence: None)
  Receive Date: 20101027
  Receipt Date: 20101014
  Transmission Date: 20110411
  Serious: Yes (Other)
  Sender: FDA-Public Use
  Company Number: CA-ELI_LILLY_AND_COMPANY-CA201010003119

PATIENT
  Sex: Female

DRUGS (4)
  1. ZYPREXA [Suspect]
  2. PROZAC [Concomitant]
  3. NOVO-FLUOXETINE [Concomitant]
  4. LOSARTAN POTASSIUM [Concomitant]

REACTIONS (6)
  - BLOOD CHOLESTEROL INCREASED [None]
  - BLOOD TRIGLYCERIDES INCREASED [None]
  - CARDIAC FAILURE [None]
  - CONGESTIVE CARDIOMYOPATHY [None]
  - HYPERGLYCAEMIA [None]
  - TYPE 2 DIABETES MELLITUS [None]
